FAERS Safety Report 5426797-X (Version None)
Quarter: 2007Q3

REPORT INFORMATION
  Report Type: 
  Country: None (occurrence: None)
  Receive Date: 20070827
  Receipt Date: 20070803
  Transmission Date: 20080115
  Serious: No
  Sender: FDA-Public Use
  Company Number: US-BOEHRINGER INGELHEIM PHARMACEUTICALS, INC.-2007-BP-18600BP

PATIENT
  Age: 88 Year
  Sex: Female

DRUGS (4)
  1. ZANTAC 75 [Suspect]
     Indication: DYSPEPSIA
     Route: 048
     Dates: start: 20070701
  2. LIPITOR [Concomitant]
  3. PLAVIX [Concomitant]
  4. SYNTHROID [Concomitant]

REACTIONS (1)
  - SOMNOLENCE [None]
